FAERS Safety Report 23399595 (Version 2)
Quarter: 2024Q1

REPORT INFORMATION
  Report Type: Spontaneous
  Country: MY (occurrence: MY)
  Receive Date: 20240113
  Receipt Date: 20240220
  Transmission Date: 20240409
  Serious: Yes (Other)
  Sender: FDA-Public Use
  Company Number: MY-002147023-NVSC2024MY006414

PATIENT

DRUGS (2)
  1. IMATINIB [Suspect]
     Active Substance: IMATINIB
     Indication: Chronic myeloid leukaemia
     Dosage: 400-500 MG, QD
     Route: 065
     Dates: start: 20050707, end: 20100603
  2. IMATINIB [Suspect]
     Active Substance: IMATINIB
     Dosage: LOW DOSE OF 100 MG, QD
     Route: 048
     Dates: start: 20081201, end: 20100603

REACTIONS (3)
  - Neutropenia [Unknown]
  - Cutaneous tuberculosis [Unknown]
  - Drug resistance [Unknown]

NARRATIVE: CASE EVENT DATE: 20080919
